FAERS Safety Report 17678631 (Version 1)
Quarter: 2020Q2

REPORT INFORMATION
  Report Type: Spontaneous
  Country: GB (occurrence: GB)
  Receive Date: 20200417
  Receipt Date: 20200417
  Transmission Date: 20200714
  Serious: Yes (Disabling, Other)
  Sender: FDA-Public Use
  Company Number: GB-TEVA-2020-GB-1223942

PATIENT
  Age: 66 Year
  Sex: Male
  Weight: 127 kg

DRUGS (12)
  1. UNIPHYLLIN CONTINUS [Concomitant]
     Active Substance: THEOPHYLLINE ANHYDROUS
     Dosage: 60 MG
     Dates: start: 20200120
  2. ZEROCREAM [Concomitant]
     Dosage: APPLY AS DIRECTEDE. (ALTERNATIVE TO EPADERM AND NUTRAPLUS)
     Dates: start: 20200127
  3. MIRTAZAPINE. [Suspect]
     Active Substance: MIRTAZAPINE
     Dosage: 15 MG
     Route: 048
  4. FUROSEMIDE. [Concomitant]
     Active Substance: FUROSEMIDE
     Dosage: 80 MG
     Dates: start: 20200120
  5. ACCRETE D3 [Concomitant]
     Active Substance: CALCIUM CARBONATE\CHOLECALCIFEROL
     Dosage: 21 DOSAGE FORMS
     Dates: start: 20200120
  6. PREDNISOLONE. [Concomitant]
     Active Substance: PREDNISOLONE
     Dosage: IN THE MORNING AFTER FOOD FOR 7 DAYS 40 MG
     Dates: start: 20200211
  7. FLUOXETINE [Concomitant]
     Active Substance: FLUOXETINE HYDROCHLORIDE
     Dosage: 60 MG
     Dates: start: 20200120
  8. VENTOLIN [Concomitant]
     Active Substance: ALBUTEROL SULFATE
     Indication: COUGH
     Dosage: ONE TO TWO PUFFS, UP TO EVERY FOUR HOURS, WHEN REQUIRED. 100 MICROGRAM
     Dates: start: 20200304
  9. SODIUM CHLORIDE. [Concomitant]
     Active Substance: SODIUM CHLORIDE
     Dosage: 2.5ML VIALS ASD
     Dates: start: 20200305
  10. MONTELUKAST [Concomitant]
     Active Substance: MONTELUKAST SODIUM
     Dosage: AT NIGHT 10 MG
     Dates: start: 20200120
  11. SPIRONOLACTONE. [Concomitant]
     Active Substance: SPIRONOLACTONE
     Dosage: 25 MG
     Dates: start: 20200120
  12. RAMIPRIL. [Concomitant]
     Active Substance: RAMIPRIL
     Dosage: IN MORNING 5 MG
     Dates: start: 20200120

REACTIONS (2)
  - Scrotal oedema [Not Recovered/Not Resolved]
  - Localised oedema [Recovering/Resolving]

NARRATIVE: CASE EVENT DATE: 20200318
